FAERS Safety Report 5955274-2 (Version None)
Quarter: 2008Q4

REPORT INFORMATION
  Report Type: 
  Country: None (occurrence: None)
  Receive Date: 20081031
  Receipt Date: 20080709
  Transmission Date: 20090506
  Serious: No
  Sender: FDA-Public Use
  Company Number: 2008PV036090

PATIENT
  Age: 62 Year
  Sex: Male

DRUGS (6)
  1. SYMLIN [Suspect]
     Indication: TYPE 2 DIABETES MELLITUS
     Dosage: 120 MCG; QD; SC, 60 MCG; BID; SC
     Route: 058
     Dates: start: 20080704, end: 20080706
  2. SYMLIN [Suspect]
     Indication: TYPE 2 DIABETES MELLITUS
     Dosage: 120 MCG; QD; SC, 60 MCG; BID; SC
     Route: 058
     Dates: start: 20080707
  3. JANUVIA [Concomitant]
  4. ACTOS [Concomitant]
  5. LANTUS [Concomitant]
  6. GLIPIZIDE [Concomitant]

REACTIONS (1)
  - BLOOD GLUCOSE INCREASED [None]
